FAERS Safety Report 9866896 (Version 5)
Quarter: 2014Q2

REPORT INFORMATION
  Report Type: Report from Study
  Country: JP (occurrence: JP)
  Receive Date: 20140204
  Receipt Date: 20140528
  Transmission Date: 20141212
  Serious: Yes (Hospitalization)
  Sender: FDA-Public Use
  Company Number: JP-ROCHE-1276363

PATIENT
  Age: 66 Year
  Sex: Female
  Weight: 49.7 kg

DRUGS (16)
  1. OBINUTUZUMAB [Suspect]
     Indication: B-CELL LYMPHOMA
     Dosage: THE LAST DOSE PRIOR TO EVENT WITH CONCENTRATION 4 MG/ML, 250 ML, DATE OF MOST RECENT DOSE PRIOR TO S
     Route: 042
     Dates: start: 20130902
  2. BENDAMUSTINE [Suspect]
     Indication: B-CELL LYMPHOMA
     Dosage: LAST DOSE PRIOR TO EVENT ON 04/SEP/2013 WAS 134.1 MG, DATE OF MOST RECENT DOSE PRIOR TO SAE: 04/SEP/
     Route: 042
     Dates: start: 20130903
  3. BAKTAR [Suspect]
     Indication: PRODUCT USED FOR UNKNOWN INDICATION
     Route: 065
  4. FAMOTIDINE [Concomitant]
     Indication: GASTRITIS
     Route: 065
     Dates: start: 20130902, end: 20130912
  5. FAMOTIDINE [Concomitant]
     Route: 065
     Dates: start: 20130918
  6. ACETAMINOPHEN [Concomitant]
     Indication: INFUSION RELATED REACTION
     Route: 065
     Dates: start: 20130902
  7. SULFAMETHOXAZOLE [Concomitant]
     Indication: INFECTION
     Route: 065
     Dates: start: 20130902, end: 20130912
  8. PANTETHINE [Concomitant]
     Indication: CONSTIPATION
     Route: 065
     Dates: start: 20130903, end: 20130910
  9. MAGNESIUM OXIDE [Concomitant]
     Indication: CONSTIPATION
     Route: 065
     Dates: start: 20130903, end: 20130910
  10. SENNOSIDE [Concomitant]
     Indication: CONSTIPATION
     Route: 065
     Dates: start: 20130903, end: 20130910
  11. SODIUM GUALENATE [Concomitant]
     Indication: INFECTION PROPHYLAXIS
     Route: 065
     Dates: start: 20130909
  12. GRANISETRON HYDROCHLORIDE [Concomitant]
     Route: 065
     Dates: start: 20130903
  13. AUGMENTIN [Concomitant]
     Indication: INFECTION PROPHYLAXIS
     Dosage: AUGMENTIN COMBINATION TABLETS
     Route: 065
     Dates: start: 20130913, end: 20130917
  14. CHLORPHENIRAMINE MALEATE [Concomitant]
     Indication: INFUSION RELATED REACTION
     Route: 065
     Dates: start: 20130902, end: 20130902
  15. HYDROCORTISONE SODIUM SUCCINATE [Concomitant]
     Indication: INFUSION RELATED REACTION
     Route: 065
     Dates: start: 20130902, end: 20130902
  16. GLUCOSE [Concomitant]
     Dosage: ELECTROLYTE/GLUCOSE SOLUTION
     Route: 065
     Dates: start: 20130913, end: 20130917

REACTIONS (1)
  - Rash [Recovered/Resolved]
